FAERS Safety Report 5528107-6 (Version None)
Quarter: 2007Q4

REPORT INFORMATION
  Report Type: 
  Country: None (occurrence: None)
  Receive Date: 20071121
  Receipt Date: 20071112
  Transmission Date: 20080405
  Serious: Yes (Hospitalization)
  Sender: FDA-Public Use
  Company Number: S07-ITA-05953-01

PATIENT
  Age: 74 Year
  Sex: Female

DRUGS (2)
  1. MONURIL (FOSFOMYCIN TROMETAMOL) [Suspect]
     Indication: CYSTITIS
     Dosage: 3 G ONCE PO
     Route: 048
     Dates: start: 20071022, end: 20071022
  2. ORAL ANTIDIABETICS [Concomitant]

REACTIONS (2)
  - CYANOSIS [None]
  - DYSPNOEA [None]
